FAERS Safety Report 13259798 (Version 1)
Quarter: 2017Q1

REPORT INFORMATION
  Report Type: Spontaneous
  Country: US (occurrence: US)
  Receive Date: 20170221
  Receipt Date: 20170221
  Transmission Date: 20170428
  Serious: Yes (Death)
  Sender: FDA-Public Use
  Company Number: None

PATIENT
  Age: 81 Year
  Sex: Male
  Weight: 63 kg

DRUGS (11)
  1. ATAVASTATIN [Concomitant]
  2. METOPROLOL. [Concomitant]
     Active Substance: METOPROLOL
  3. AMIODORONE [Concomitant]
     Active Substance: AMIODARONE
  4. LEVITIRACETAM [Concomitant]
     Active Substance: LEVETIRACETAM
  5. ELIQUIS [Suspect]
     Active Substance: APIXABAN
     Indication: ATRIAL FIBRILLATION
     Dosage: ?          QUANTITY:1 TABLET(S);?
     Route: 048
     Dates: start: 20161230, end: 20170130
  6. FOLIC ACID. [Concomitant]
     Active Substance: FOLIC ACID
  7. BABY ASPIRIN [Concomitant]
     Active Substance: ASPIRIN
  8. METFORMIN [Concomitant]
     Active Substance: METFORMIN HYDROCHLORIDE
  9. VITAMIN C [Concomitant]
     Active Substance: ASCORBIC ACID
  10. GLIMEMPRIDE [Concomitant]
  11. VITAMIN D3 [Concomitant]
     Active Substance: CHOLECALCIFEROL

REACTIONS (7)
  - Seizure [None]
  - Dyspnoea [None]
  - Cerebral haemorrhage [None]
  - Wheezing [None]
  - Asthenia [None]
  - Dysarthria [None]
  - Pneumonia [None]

NARRATIVE: CASE EVENT DATE: 20170122
